FAERS Safety Report 20658549 (Version 1)
Quarter: 2022Q1

REPORT INFORMATION
  Report Type: Spontaneous
  Country: US (occurrence: US)
  Receive Date: 20220331
  Receipt Date: 20220331
  Transmission Date: 20220423
  Serious: No
  Sender: FDA-Public Use
  Company Number: US-BIOGEN-2022BI01106895

PATIENT
  Sex: Female

DRUGS (1)
  1. TECFIDERA [Suspect]
     Active Substance: DIMETHYL FUMARATE
     Indication: Multiple sclerosis
     Route: 065
     Dates: start: 20141029, end: 20211201

REACTIONS (5)
  - Back pain [Unknown]
  - Migraine [Unknown]
  - Multiple sclerosis [Unknown]
  - Intervertebral disc protrusion [Unknown]
  - Spondylitis [Unknown]

NARRATIVE: CASE EVENT DATE: 20140101
